FAERS Safety Report 5772862-7 (Version None)
Quarter: 2008Q2

REPORT INFORMATION
  Report Type: 
  Country: None (occurrence: None)
  Receive Date: 20080613
  Receipt Date: 20080605
  Transmission Date: 20081010
  Serious: Yes (Hospitalization, Disabling)
  Sender: FDA-Public Use
  Company Number: RU-GILEAD-2008-0016296

PATIENT
  Sex: Female
  Weight: 72 kg

DRUGS (5)
  1. AMBRISENTAN [Suspect]
     Indication: PULMONARY ARTERIAL HYPERTENSION
     Dates: start: 20070808, end: 20080501
  2. AMBRISENTAN [Suspect]
     Dates: start: 20070521, end: 20070807
  3. AMBRISENTAN [Suspect]
     Dates: start: 20050425, end: 20070520
  4. AMBRISENTAN [Suspect]
     Dates: start: 20050131, end: 20050424
  5. CIPROFLOXACIN HCL [Concomitant]
     Dates: start: 20080417, end: 20080419

REACTIONS (2)
  - CARDIAC FAILURE [None]
  - PULMONARY ARTERIAL HYPERTENSION [None]
